FAERS Safety Report 5318422-3 (Version None)
Quarter: 2007Q2

REPORT INFORMATION
  Report Type: 
  Country: None (occurrence: None)
  Receive Date: 20070507
  Receipt Date: 20070427
  Transmission Date: 20071010
  Serious: Yes (Other)
  Sender: FDA-Public Use
  Company Number: GB-MERCK-0704GBR00250

PATIENT
  Sex: Male

DRUGS (1)
  1. INDOCIN [Suspect]
     Route: 048
     Dates: start: 20070326, end: 20070326

REACTIONS (3)
  - DIZZINESS [None]
  - MALAISE [None]
  - VITREOUS FLOATERS [None]
